FAERS Safety Report 10580400 (Version 2)
Quarter: 2015Q1

REPORT INFORMATION
  Report Type: Spontaneous
  Country: US (occurrence: US)
  Receive Date: 20141112
  Receipt Date: 20150202
  Transmission Date: 20150720
  Serious: No
  Sender: FDA-Public Use
  Company Number: US-ASTRAZENECA-2014SE78170

PATIENT
  Age: 3648 Week
  Sex: Female
  Weight: 61.2 kg

DRUGS (10)
  1. OPIUM [Concomitant]
     Active Substance: OPIUM
     Indication: DIARRHOEA
     Dates: start: 2012
  2. PROAIR HFA [Concomitant]
     Active Substance: ALBUTEROL SULFATE
     Indication: ASTHMA
     Dosage: AS REQUIRED
     Route: 055
     Dates: start: 2010
  3. HYDROCODONE [Concomitant]
     Active Substance: HYDROCODONE
     Indication: INTERVERTEBRAL DISC PROTRUSION
     Dates: start: 2008
  4. VITAMIN B12 [Concomitant]
     Active Substance: CYANOCOBALAMIN
     Indication: ANAEMIA
     Dates: start: 2013
  5. HUMIRA [Concomitant]
     Active Substance: ADALIMUMAB
     Indication: CROHN^S DISEASE
  6. RHINOCORT [Suspect]
     Active Substance: BUDESONIDE
     Indication: SINUSITIS
     Dosage: 32 MCG ONE SPRAY PER NOSTRIL PER DAY EVERY DAY
     Route: 045
  7. LOMOTIL [Concomitant]
     Active Substance: ATROPINE SULFATE\DIPHENOXYLATE HYDROCHLORIDE
     Indication: DIARRHOEA
     Dates: start: 2010
  8. PENTASA [Concomitant]
     Active Substance: MESALAMINE
     Indication: DIARRHOEA
  9. FOLIC ACID. [Concomitant]
     Active Substance: FOLIC ACID
     Dates: start: 20140823
  10. METHOTREXATE [Concomitant]
     Active Substance: METHOTREXATE
     Indication: CROHN^S DISEASE

REACTIONS (6)
  - Crohn^s disease [Unknown]
  - Device misuse [Unknown]
  - Vitamin D decreased [Unknown]
  - Product use issue [Not Recovered/Not Resolved]
  - Paranasal sinus discomfort [Unknown]
  - Intentional product misuse [Unknown]

NARRATIVE: CASE EVENT DATE: 201306
